FAERS Safety Report 25592207 (Version 1)
Quarter: 2025Q3

REPORT INFORMATION
  Report Type: Report from Study
  Country: CA (occurrence: CA)
  Receive Date: 20250722
  Receipt Date: 20250722
  Transmission Date: 20251021
  Serious: Yes (Other)
  Sender: ABBVIE
  Company Number: CA-ABBVIE-6378358

PATIENT
  Age: 93 Year
  Sex: Female

DRUGS (1)
  1. SKYRIZI [Suspect]
     Active Substance: RISANKIZUMAB-RZAA
     Indication: Crohn^s disease
     Dosage: LAST DOSE TAKEN: 03 JUL 2025
     Route: 042

REACTIONS (6)
  - Squamous cell carcinoma [Unknown]
  - Rash [Recovered/Resolved]
  - Abdominal rebound tenderness [Unknown]
  - Vulvovaginal erythema [Recovered/Resolved]
  - Faecal calprotectin increased [Unknown]
  - Abdominal pain lower [Unknown]

NARRATIVE: CASE EVENT DATE: 20250601
